FAERS Safety Report 10230595 (Version 5)
Quarter: 2014Q3

REPORT INFORMATION
  Report Type: Spontaneous
  Country: US (occurrence: US)
  Receive Date: 20140611
  Receipt Date: 20140916
  Transmission Date: 20150326
  Serious: Yes (Hospitalization, Other)
  Sender: FDA-Public Use
  Company Number: US-INCYTE CORPORATION-2014IN001089

PATIENT
  Age: 58 Year
  Sex: Female
  Weight: 70.75 kg

DRUGS (7)
  1. JAKAFI [Suspect]
     Active Substance: RUXOLITINIB
     Dosage: 15 MG, UNK
     Route: 048
     Dates: start: 2014, end: 2014
  2. FLEXERIL [Concomitant]
     Active Substance: CYCLOBENZAPRINE HYDROCHLORIDE
  3. TOPROL XL [Concomitant]
     Active Substance: METOPROLOL SUCCINATE
  4. JAKAFI [Suspect]
     Active Substance: RUXOLITINIB
     Indication: MYELOFIBROSIS
     Dosage: 10 MG, BID
     Route: 048
     Dates: start: 20130517, end: 2014
  5. JAKAFI [Suspect]
     Active Substance: RUXOLITINIB
     Dosage: 20 MG, UNK
     Route: 048
     Dates: start: 2014
  6. LUVOX [Concomitant]
     Active Substance: FLUVOXAMINE MALEATE
  7. IMDUR [Concomitant]
     Active Substance: ISOSORBIDE MONONITRATE

REACTIONS (11)
  - White blood cell count increased [Unknown]
  - Inflammation [Unknown]
  - Costochondritis [Unknown]
  - Bone pain [Unknown]
  - Platelet count decreased [Unknown]
  - Bronchitis [Not Recovered/Not Resolved]
  - Splenomegaly [Unknown]
  - Acute myeloid leukaemia [Unknown]
  - Drug effect decreased [Unknown]
  - Abdominal pain [Unknown]
  - Back pain [Recovering/Resolving]

NARRATIVE: CASE EVENT DATE: 2014
